FAERS Safety Report 8304342-9 (Version None)
Quarter: 2012Q2

REPORT INFORMATION
  Report Type: 
  Country: None (occurrence: None)
  Receive Date: 20120423
  Receipt Date: 20120410
  Transmission Date: 20120825
  Serious: Yes (Other)
  Sender: FDA-Public Use
  Company Number: GB-JNJFOC-20080402881

PATIENT
  Age: 32 Year
  Sex: Female

DRUGS (5)
  1. ACETAMINOPHEN [Suspect]
     Indication: LYMPHADENOPATHY
     Dosage: 2000-4000 MG
  2. DOXYCYCLINE [Concomitant]
  3. RIFAMPICIN [Interacting]
     Indication: PYREXIA
  4. CLARITHROMYCIN [Concomitant]
  5. ACETAMINOPHEN [Suspect]
     Indication: PYREXIA
     Dosage: 2000-4000 MG

REACTIONS (3)
  - DRUG INTERACTION [None]
  - HEPATIC FAILURE [None]
  - HEPATIC ENCEPHALOPATHY [None]
